FAERS Safety Report 20861264 (Version 1)
Quarter: 2022Q2

REPORT INFORMATION
  Report Type: Spontaneous
  Country: CN (occurrence: CN)
  Receive Date: 20220523
  Receipt Date: 20220523
  Transmission Date: 20220721
  Serious: Yes (Hospitalization)
  Sender: FDA-Public Use
  Company Number: CN-009507513-2205CHN005178

PATIENT
  Age: 69 Year
  Sex: Male
  Weight: 88 kg

DRUGS (3)
  1. CILASTATIN SODIUM\IMIPENEM [Suspect]
     Active Substance: CILASTATIN SODIUM\IMIPENEM
     Indication: Pneumonia
     Dosage: 1 GRAM (G), EVERY 8 HOURS (Q8H), INTRAVENOUS (IV) DRIP
     Route: 041
     Dates: start: 20220419, end: 20220424
  2. SODIUM CHLORIDE [Concomitant]
     Active Substance: SODIUM CHLORIDE
     Indication: Medication dilution
     Dosage: 200 MILLILITER (ML), EVERY 8 HOURS (Q8H), INTRAVENOUS (IV) DRIP
     Route: 041
     Dates: start: 20220419, end: 20220424
  3. GLUTATHIONE [Suspect]
     Active Substance: GLUTATHIONE
     Indication: Renal disorder prophylaxis

REACTIONS (1)
  - Blood creatine increased [Recovering/Resolving]

NARRATIVE: CASE EVENT DATE: 20220424
